FAERS Safety Report 4562340-5 (Version None)
Quarter: 2005Q1

REPORT INFORMATION
  Report Type: 
  Country: None (occurrence: None)
  Receive Date: 20050124
  Receipt Date: 20050110
  Transmission Date: 20050727
  Serious: Yes (Other)
  Sender: FDA-Public Use
  Company Number: 2004105231

PATIENT
  Age: 38 Year
  Sex: Female

DRUGS (3)
  1. GEODON [Suspect]
     Indication: ILL-DEFINED DISORDER
  2. LITHIUM (LITHIUM) [Suspect]
     Indication: SCHIZOAFFECTIVE DISORDER
     Dosage: 1200 MG, ORAL
     Route: 048
  3. LAMOTRIGINE [Concomitant]

REACTIONS (3)
  - ATRIOVENTRICULAR BLOCK FIRST DEGREE [None]
  - ELECTROCARDIOGRAM PR PROLONGATION [None]
  - SINUS BRADYCARDIA [None]
